FAERS Safety Report 18435519 (Version 2)
Quarter: 2020Q4

REPORT INFORMATION
  Report Type: Spontaneous
  Country: US (occurrence: US)
  Receive Date: 20201027
  Receipt Date: 20201103
  Transmission Date: 20210114
  Serious: No
  Sender: FDA-Public Use
  Company Number: US-TAKEDA-US202034247

PATIENT
  Sex: Female
  Weight: 54 kg

DRUGS (1)
  1. ADDERALL XR [Suspect]
     Active Substance: AMPHETAMINE ASPARTATE\AMPHETAMINE SULFATE\DEXTROAMPHETAMINE SACCHARATE\DEXTROAMPHETAMINE SULFATE
     Indication: ATTENTION DEFICIT HYPERACTIVITY DISORDER
     Dosage: 30 MILLIGRAM, Q2WEEKS
     Route: 048

REACTIONS (6)
  - Product physical issue [Unknown]
  - Dyspnoea [Unknown]
  - Pharyngeal hypoaesthesia [Unknown]
  - Dry throat [Unknown]
  - Drug ineffective [Unknown]
  - Hypersensitivity [Unknown]
